FAERS Safety Report 7412540 (Version 2)
Quarter: 2013Q2

REPORT INFORMATION
  Report Type: Spontaneous
  Country: GB (occurrence: None)
  Receive Date: 20100528
  Receipt Date: 20130430
  Transmission Date: 20140414
  Serious: Yes (Hospitalization)
  Sender: FDA-Public Use
  Company Number: 597758

PATIENT
  Age: 50 Year
  Sex: Female

DRUGS (5)
  1. DACARBAZINE [Suspect]
     Indication: HODGKIN^S DISEASE
     Dosage: 652.5MG MILLIGRAM (S) INTRAVEOUS (NOT OTHERWISE SPECIFIED)?
     Route: 042
     Dates: start: 20100302
  2. DOXORUBICIN HYDROCHLORIDE [Suspect]
     Indication: HODGKIN^S DISEASE
     Dosage: 43.5MG MILLIGRAM (S) INTRAVENOUS (NOT OTHERWISE SPECIFIED)
     Route: 042
     Dates: start: 20100302
  3. SULFAMETHOXAZOLE AND TRIMETHOPRIM [Concomitant]
  4. LANSOPRAZOLE [Concomitant]
  5. NYSTATIN [Concomitant]

REACTIONS (2)
  - STAPHYLOCOCCAL BACTERAEMIA [None]
  - SKIN INFECTION [None]
